FAERS Safety Report 21325078 (Version 1)
Quarter: 2022Q3

REPORT INFORMATION
  Report Type: Spontaneous
  Country: CN (occurrence: CN)
  Receive Date: 20220912
  Receipt Date: 20220912
  Transmission Date: 20221027
  Serious: Yes (Other)
  Sender: FDA-Public Use
  Company Number: CN-PFIZER INC-PV202200060169

PATIENT
  Age: 11 Year
  Sex: Male
  Weight: 41.2 kg

DRUGS (3)
  1. MEDROL [Suspect]
     Active Substance: METHYLPREDNISOLONE
     Indication: Nephrotic syndrome
     Dosage: 12 MG, 1X/DAY
     Route: 048
     Dates: start: 20140419, end: 20201101
  2. PREDNISONE ACETATE [Suspect]
     Active Substance: PREDNISONE ACETATE
     Indication: Nephrotic syndrome
     Dosage: 25 MG, 1X/DAY
     Route: 048
     Dates: start: 20130823, end: 20140418
  3. PREDNISONE ACETATE [Suspect]
     Active Substance: PREDNISONE ACETATE
     Dosage: 30 MG, 1X/DAY
     Route: 048
     Dates: start: 20210309, end: 20220831

REACTIONS (2)
  - Growth retardation [Unknown]
  - Osteoporosis [Unknown]

NARRATIVE: CASE EVENT DATE: 20220708
